FAERS Safety Report 8047387-9 (Version None)
Quarter: 2012Q1

REPORT INFORMATION
  Report Type: 
  Country: None (occurrence: None)
  Receive Date: 20120116
  Receipt Date: 20120109
  Transmission Date: 20120608
  Serious: Yes (Hospitalization, Other)
  Sender: FDA-Public Use
  Company Number: GB-VERTEX PHARMACEUTICALS INC.-000000000000000002

PATIENT
  Sex: Male

DRUGS (5)
  1. RIBAVIRIN [Concomitant]
     Indication: HEPATITIS C
     Route: 048
     Dates: start: 20111111
  2. RAMIPRIL [Concomitant]
     Indication: HYPERTENSION
     Route: 048
     Dates: start: 20111111
  3. INCIVO (TELAPREVIR) [Suspect]
     Indication: HEPATITIS C
     Dosage: DOSAGE FORM: TABLET
     Route: 048
     Dates: start: 20111111
  4. PEG-INTRON [Concomitant]
     Indication: HEPATITIS C
     Dates: start: 20111111
  5. FELODIPINE [Interacting]
     Indication: HYPERTENSION
     Dosage: DOSAGE FORM: UNSPECIFIED
     Route: 048
     Dates: start: 20111111

REACTIONS (6)
  - RASH [None]
  - NAUSEA [None]
  - DRUG INTERACTION [None]
  - BLOOD PRESSURE INADEQUATELY CONTROLLED [None]
  - WEIGHT DECREASED [None]
  - HYPOTENSION [None]
